FAERS Safety Report 8866108 (Version 1)
Quarter: 2012Q4

REPORT INFORMATION
  Report Type: 
  Country: GB (occurrence: GB)
  Receive Date: 20121025
  Receipt Date: 20121025
  Transmission Date: 20130627
  Serious: Yes (Other)
  Sender: FDA-Public Use
  Company Number: GB-MYLANLABS-2012S1021467

PATIENT
  Age: 31 Year
  Sex: Female
  Weight: 65.77 kg

DRUGS (2)
  1. OMEPRAZOLE [Suspect]
     Indication: GASTRIC ULCER
     Route: 048
     Dates: start: 20120302, end: 20120927
  2. OMEPRAZOLE [Suspect]
     Indication: HELICOBACTER INFECTION
     Route: 048
     Dates: start: 20120302, end: 20120927

REACTIONS (6)
  - Bipolar I disorder [Recovered/Resolved]
  - Jaundice [Recovered/Resolved]
  - Hepatic pain [Recovering/Resolving]
  - Stress [Recovered/Resolved]
  - Oedema peripheral [Recovered/Resolved]
  - Weight increased [Recovered/Resolved]
